FAERS Safety Report 9753665 (Version 2)
Quarter: 2014Q3

REPORT INFORMATION
  Report Type: Spontaneous
  Country: US (occurrence: US)
  Receive Date: 20131213
  Receipt Date: 20140813
  Transmission Date: 20150326
  Serious: Yes (Hospitalization)
  Sender: FDA-Public Use
  Company Number: PHHY2013US142740

PATIENT
  Age: 68 Year
  Sex: Male

DRUGS (10)
  1. IBUPROFEN. [Suspect]
     Active Substance: IBUPROFEN
     Indication: PAIN
  2. SIMVASTATIN. [Concomitant]
     Active Substance: SIMVASTATIN
  3. LEVOFLOXACIN [Concomitant]
     Active Substance: LEVOFLOXACIN
     Indication: BRONCHITIS
  4. LOSARTAN [Suspect]
     Active Substance: LOSARTAN
  5. OMEPRAZOLE. [Suspect]
     Active Substance: OMEPRAZOLE
  6. CLOPIDOGREL [Concomitant]
     Active Substance: CLOPIDOGREL BISULFATE
  7. ACETYLSALICYLIC ACID [Suspect]
     Active Substance: ASPIRIN
  8. AURANOFIN [Suspect]
     Active Substance: AURANOFIN
     Indication: PSORIATIC ARTHROPATHY
  9. ATENOLOL. [Concomitant]
     Active Substance: ATENOLOL
  10. HYDROCHLOROTHIAZIDE. [Suspect]
     Active Substance: HYDROCHLOROTHIAZIDE

REACTIONS (8)
  - Kidney fibrosis [Unknown]
  - Tubulointerstitial nephritis [Unknown]
  - Blood creatinine increased [Unknown]
  - Glomerular filtration rate decreased [Unknown]
  - Granuloma [Unknown]
  - Blood urea increased [Unknown]
  - Renal failure acute [Unknown]
  - Renal tubular atrophy [Unknown]
